FAERS Safety Report 18723501 (Version 1)
Quarter: 2021Q1

REPORT INFORMATION
  Report Type: Spontaneous
  Country: US (occurrence: US)
  Receive Date: 20210108
  Receipt Date: 20210108
  Transmission Date: 20210419
  Serious: Yes (Death)
  Sender: FDA-Public Use
  Company Number: None

PATIENT
  Age: 89 Year
  Sex: Male
  Weight: 122.5 kg

DRUGS (3)
  1. AZITHROMYCIN ANHYDROUS. [Concomitant]
     Active Substance: AZITHROMYCIN ANHYDROUS
     Dates: start: 20201112, end: 20201112
  2. DOFETILIDE. [Suspect]
     Active Substance: DOFETILIDE
     Indication: ATRIAL FIBRILLATION
     Route: 048
     Dates: end: 20201113
  3. AMIODARONE [Suspect]
     Active Substance: AMIODARONE
     Indication: ATRIAL FIBRILLATION
     Dosage: ?          OTHER FREQUENCY:BOLUS AND DRIP;?
     Route: 041
     Dates: start: 20201112, end: 20201113

REACTIONS (9)
  - Hypotension [None]
  - Syncope [None]
  - Renal failure [None]
  - Electrocardiogram ST segment depression [None]
  - Electrocardiogram QT prolonged [None]
  - Hyperkalaemia [None]
  - Pneumonia [None]
  - Ventricular tachycardia [None]
  - Cardiac failure [None]

NARRATIVE: CASE EVENT DATE: 20201113
